FAERS Safety Report 9351184 (Version 1)
Quarter: 2013Q2

REPORT INFORMATION
  Report Type: Spontaneous
  Country: UY (occurrence: UY)
  Receive Date: 20130617
  Receipt Date: 20130617
  Transmission Date: 20140414
  Serious: Yes (Hospitalization)
  Sender: FDA-Public Use
  Company Number: UY-PFIZER INC-2013176444

PATIENT
  Sex: Female

DRUGS (1)
  1. SUTENT [Suspect]
     Indication: RENAL CANCER METASTATIC
     Dosage: 37.5 MG, UNK
     Dates: start: 201304

REACTIONS (3)
  - Vascular purpura [Recovered/Resolved]
  - Fatigue [Unknown]
  - Stomatitis [Unknown]
